FAERS Safety Report 23504483 (Version 1)
Quarter: 2024Q1

REPORT INFORMATION
  Report Type: Spontaneous
  Country: US (occurrence: US)
  Receive Date: 20240209
  Receipt Date: 20240209
  Transmission Date: 20240410
  Serious: No
  Sender: FDA-Public Use
  Company Number: US-IGSA-BIG0026005

PATIENT
  Sex: Female
  Weight: 50.34 kg

DRUGS (6)
  1. PROLASTIN-C LIQUID [Suspect]
     Active Substance: .ALPHA.1-PROTEINASE INHIBITOR HUMAN
     Indication: Alpha-1 antitrypsin deficiency
     Dosage: 3600 MILLIGRAM, Q.WK.
     Route: 042
     Dates: start: 20181120
  2. ALBUTEROL [Concomitant]
     Active Substance: ALBUTEROL
  3. PREDNISONE [Concomitant]
     Active Substance: PREDNISONE
  4. SINGULAIR [Concomitant]
     Active Substance: MONTELUKAST SODIUM
     Dosage: UNK
  5. WELLBUTRIN [Concomitant]
     Active Substance: BUPROPION HYDROCHLORIDE
  6. PLAVIX [Concomitant]
     Active Substance: CLOPIDOGREL BISULFATE
     Dosage: UNK

REACTIONS (3)
  - Incorrect drug administration rate [Recovered/Resolved]
  - Tremor [Recovered/Resolved]
  - Headache [Recovered/Resolved]
